FAERS Safety Report 5637519-1 (Version None)
Quarter: 2008Q1

REPORT INFORMATION
  Report Type: 
  Country: None (occurrence: None)
  Receive Date: 20080225
  Receipt Date: 20080214
  Transmission Date: 20080703
  Serious: Yes (Hospitalization)
  Sender: FDA-Public Use
  Company Number: FR-PFIZER INC-2008014776

PATIENT
  Sex: Female

DRUGS (1)
  1. CYTOTEC [Suspect]
     Indication: ABORTION
     Dosage: TEXT:6 DF-FREQ:TID
     Route: 048
     Dates: start: 20071113, end: 20071113

REACTIONS (2)
  - ABORTION SPONTANEOUS [None]
  - DRUG INEFFECTIVE FOR UNAPPROVED INDICATION [None]
